FAERS Safety Report 5154831-3 (Version None)
Quarter: 2006Q4

REPORT INFORMATION
  Report Type: 
  Country: None (occurrence: None)
  Receive Date: 20061121
  Receipt Date: 20061113
  Transmission Date: 20070319
  Serious: Yes (Other)
  Sender: FDA-Public Use
  Company Number: US-JNJFOC-20061103168

PATIENT
  Age: 32 Year
  Sex: Female
  Weight: 68.04 kg

DRUGS (1)
  1. TOPAMAX [Suspect]
     Indication: MIGRAINE
     Route: 048

REACTIONS (2)
  - ARTHRITIS BACTERIAL [None]
  - SYNOVIAL CYST [None]
